FAERS Safety Report 20764716 (Version 1)
Quarter: 2022Q2

REPORT INFORMATION
  Report Type: Spontaneous
  Country: US (occurrence: US)
  Receive Date: 20220428
  Receipt Date: 20220428
  Transmission Date: 20220720
  Serious: No
  Sender: FDA-Public Use
  Company Number: US-PFIZER INC-2020501488

PATIENT
  Age: 87 Year
  Sex: Female
  Weight: 56 kg

DRUGS (1)
  1. LYRICA [Suspect]
     Active Substance: PREGABALIN
     Indication: Back pain
     Dosage: 75 MG, 2X/DAY
     Dates: start: 2017

REACTIONS (1)
  - Confusional state [Unknown]
